FAERS Safety Report 21995881 (Version 1)
Quarter: 2023Q1

REPORT INFORMATION
  Report Type: Spontaneous
  Country: None (occurrence: US)
  Receive Date: 20230215
  Receipt Date: 20230215
  Transmission Date: 20230418
  Serious: No
  Sender: FDA-Public Use
  Company Number: US-Breckenridge Pharmaceutical, Inc.-2137999

PATIENT
  Age: 42 Year
  Sex: Female

DRUGS (8)
  1. ASENAPINE MALEATE [Suspect]
     Active Substance: ASENAPINE MALEATE
     Indication: Schizophrenia
     Route: 060
  2. LEXAPRO [Concomitant]
     Active Substance: ESCITALOPRAM OXALATE
  3. TRAZODONE [Concomitant]
     Active Substance: TRAZODONE HYDROCHLORIDE
  4. VYVANSE [Concomitant]
     Active Substance: LISDEXAMFETAMINE DIMESYLATE
  5. XANAX [Concomitant]
     Active Substance: ALPRAZOLAM
  6. PRILOSEC [Concomitant]
     Active Substance: OMEPRAZOLE MAGNESIUM
  7. ALLEGRA [Concomitant]
     Active Substance: FEXOFENADINE HYDROCHLORIDE
  8. ASPIRIN [Concomitant]
     Active Substance: ASPIRIN

REACTIONS (17)
  - Drug ineffective [Not Recovered/Not Resolved]
  - Therapeutic product ineffective [Not Recovered/Not Resolved]
  - Oral pain [Not Recovered/Not Resolved]
  - Hypoaesthesia oral [Unknown]
  - Hypoaesthesia oral [Unknown]
  - Tongue discomfort [Not Recovered/Not Resolved]
  - Headache [Unknown]
  - Chills [Unknown]
  - Hyperhidrosis [Unknown]
  - Pain in extremity [Unknown]
  - Fatigue [Unknown]
  - Dizziness [Unknown]
  - Memory impairment [Unknown]
  - Product residue present [Not Recovered/Not Resolved]
  - Product packaging difficult to open [Unknown]
  - Foaming at mouth [Unknown]
  - Product physical issue [Unknown]
